FAERS Safety Report 25690601 (Version 4)
Quarter: 2025Q4

REPORT INFORMATION
  Report Type: Spontaneous
  Country: US (occurrence: US)
  Receive Date: 20250818
  Receipt Date: 20251023
  Transmission Date: 20260118
  Serious: Yes (Other)
  Sender: PFIZER
  Company Number: US-PFIZER INC-202500161458

PATIENT
  Age: 11 Year
  Sex: Male

DRUGS (1)
  1. GENOTROPIN [Suspect]
     Active Substance: SOMATROPIN
     Dosage: 1.4 MG

REACTIONS (5)
  - Drug ineffective [Unknown]
  - Incorrect dose administered by device [Unknown]
  - Injection site pain [Unknown]
  - Device mechanical issue [Unknown]
  - Device leakage [Unknown]
